FAERS Safety Report 8519517-3 (Version None)
Quarter: 2012Q3

REPORT INFORMATION
  Report Type: 
  Country: None (occurrence: None)
  Receive Date: 20120718
  Receipt Date: 20120716
  Transmission Date: 20120928
  Serious: Yes (Death)
  Sender: FDA-Public Use
  Company Number: US-CELGENEUS-163-21880-12063480

PATIENT
  Sex: Male

DRUGS (3)
  1. ZOMETA [Concomitant]
     Indication: MULTIPLE MYELOMA
     Dosage: .1333 MILLIGRAM
     Route: 041
     Dates: start: 20030201, end: 20110607
  2. REVLIMID [Suspect]
     Indication: MULTIPLE MYELOMA
     Dosage: 15 MILLIGRAM
     Route: 048
     Dates: start: 20120301
  3. REVLIMID [Suspect]
     Dosage: 10 MILLIGRAM
     Route: 048
     Dates: start: 20120524, end: 20120604

REACTIONS (1)
  - MULTIPLE MYELOMA [None]
